FAERS Safety Report 17935447 (Version 1)
Quarter: 2020Q2

REPORT INFORMATION
  Report Type: Spontaneous
  Country: US (occurrence: US)
  Receive Date: 20200624
  Receipt Date: 20200624
  Transmission Date: 20200714
  Serious: No
  Sender: FDA-Public Use
  Company Number: US-TEVA-2020-US-1791513

PATIENT
  Age: 49 Year
  Sex: Female

DRUGS (1)
  1. PROAIR RESPICLICK [Suspect]
     Active Substance: ALBUTEROL SULFATE
     Dosage: 2 PUFFS EVERY 6 HOURS
     Route: 055
     Dates: start: 20200422, end: 20200422

REACTIONS (9)
  - Drug ineffective [Unknown]
  - Ill-defined disorder [Unknown]
  - Product use in unapproved indication [Unknown]
  - Polydipsia [Recovered/Resolved]
  - Feeling abnormal [Recovered/Resolved]
  - Dry mouth [Recovered/Resolved]
  - Nausea [Recovered/Resolved]
  - Ageusia [Recovered/Resolved]
  - Product substitution issue [Unknown]

NARRATIVE: CASE EVENT DATE: 202004
